FAERS Safety Report 17136600 (Version 1)
Quarter: 2019Q4

REPORT INFORMATION
  Report Type: Spontaneous
  Country: RO (occurrence: RO)
  Receive Date: 20191210
  Receipt Date: 20191210
  Transmission Date: 20200122
  Serious: Yes (Other)
  Sender: FDA-Public Use
  Company Number: NVSC2019RO059858

PATIENT

DRUGS (7)
  1. IBUPROFEN. [Suspect]
     Active Substance: IBUPROFEN
     Indication: MYALGIA
  2. IBUPROFEN. [Suspect]
     Active Substance: IBUPROFEN
     Indication: PYREXIA
  3. PARACETAMOL [Suspect]
     Active Substance: ACETAMINOPHEN
     Indication: PYREXIA
     Dosage: UNK
     Route: 065
  4. LEVOTHYROXINE. [Concomitant]
     Active Substance: LEVOTHYROXINE
     Indication: THYROID THERAPY
     Dosage: UNK
     Route: 065
  5. LEVOFLOXACIN. [Suspect]
     Active Substance: LEVOFLOXACIN
     Indication: SEPSIS
     Dosage: 750 MG, QD
     Route: 048
  6. LEVOFLOXACIN. [Suspect]
     Active Substance: LEVOFLOXACIN
     Indication: PYELONEPHRITIS
  7. IBUPROFEN. [Suspect]
     Active Substance: IBUPROFEN
     Indication: BACK PAIN
     Dosage: UNK
     Route: 065

REACTIONS (11)
  - Condition aggravated [Unknown]
  - Sepsis [Recovered/Resolved]
  - Neurological decompensation [Unknown]
  - Mental status changes [Unknown]
  - Pyrexia [Recovered/Resolved]
  - Bacterial toxaemia [Recovered/Resolved]
  - Inflammatory marker increased [Unknown]
  - Drug ineffective [Unknown]
  - Bacterial translocation [Unknown]
  - C-reactive protein increased [Unknown]
  - Product administration error [Unknown]
